FAERS Safety Report 10040525 (Version 2)
Quarter: 2014Q2

REPORT INFORMATION
  Report Type: Spontaneous
  Country: US (occurrence: US)
  Receive Date: 20140327
  Receipt Date: 20140625
  Transmission Date: 20141212
  Serious: Yes (Hospitalization)
  Sender: FDA-Public Use
  Company Number: US-BRISTOL-MYERS SQUIBB COMPANY-20542098

PATIENT
  Age: 70 Year
  Sex: Male

DRUGS (1)
  1. SPRYCEL (CML) TABS 100 MG [Suspect]
     Indication: CHRONIC MYELOID LEUKAEMIA
     Dosage: TABLET
     Route: 048
     Dates: start: 20130205, end: 20140606

REACTIONS (6)
  - Fall [Unknown]
  - Contusion [Unknown]
  - Joint injury [Unknown]
  - Periorbital contusion [Unknown]
  - Pleural effusion [Unknown]
  - Syncope [Unknown]
